FAERS Safety Report 7399370-4 (Version None)
Quarter: 2011Q2

REPORT INFORMATION
  Report Type: 
  Country: None (occurrence: None)
  Receive Date: 20110407
  Receipt Date: 20110330
  Transmission Date: 20111010
  Serious: Yes (Hospitalization)
  Sender: FDA-Public Use
  Company Number: SE-NOVOPROD-314764

PATIENT
  Sex: Male
  Weight: 127 kg

DRUGS (9)
  1. VICTOZA [Suspect]
     Indication: TYPE 2 DIABETES MELLITUS
     Dosage: 0.6 MG, QD
     Route: 058
     Dates: start: 20100701
  2. AMLODIPINE [Concomitant]
     Dosage: 10 MG, QD
     Route: 048
  3. VICTOZA [Suspect]
     Dosage: 1.2 MG, QD
     Dates: start: 20100101
  4. METFORMIN [Concomitant]
     Dosage: 1 G, TID
     Route: 048
  5. ACETYLSALICYLIC ACID SRT [Concomitant]
     Dosage: 75 MG, QD
     Route: 048
  6. METOPROLOL [Concomitant]
     Dosage: 50 MG, QD
     Route: 048
  7. GLIMEPIRIDE [Concomitant]
     Dosage: 4 MG, QD
     Route: 048
  8. SIMVASTATIN [Concomitant]
     Dosage: 40 MG, QD
     Route: 048
  9. VALSARTAN + HIDROCLOROTIAZIDA GENFAR [Concomitant]
     Dosage: 160MG/12.5 MG, QD
     Route: 048

REACTIONS (2)
  - BLOOD THYROID STIMULATING HORMONE DECREASED [None]
  - ATRIAL FIBRILLATION [None]
